FAERS Safety Report 11150048 (Version 1)
Quarter: 2015Q2

REPORT INFORMATION
  Report Type: Spontaneous
  Country: CN (occurrence: CN)
  Receive Date: 20150529
  Receipt Date: 20150529
  Transmission Date: 20150821
  Serious: Yes (Other)
  Sender: FDA-Public Use
  Company Number: CN-BAXTER-2015BAX027905

PATIENT
  Age: 49 Year
  Sex: Female
  Weight: 52 kg

DRUGS (6)
  1. FLUOROURACIL. [Suspect]
     Active Substance: FLUOROURACIL
     Indication: CHEMOTHERAPY
     Dosage: 60 DRIPS PER MINUTE
     Route: 041
     Dates: start: 20141201, end: 20141201
  2. 5% GLUCOSE  INJECTION [Suspect]
     Active Substance: DEXTROSE
     Indication: CHEMOTHERAPY
     Dosage: 60 DRIPS PER MINUTE
     Route: 041
     Dates: start: 20141201, end: 20141201
  3. PIRARUBICIN HYDROCHLORIDE [Suspect]
     Active Substance: PIRARUBICIN HYDROCHLORIDE
     Indication: CHEMOTHERAPY
     Dosage: 60 DRIPS PER MINUTE
     Route: 041
     Dates: start: 20141201, end: 20141201
  4. ENDOXAN [Suspect]
     Active Substance: CYCLOPHOSPHAMIDE
     Indication: CHEMOTHERAPY
     Dosage: 60 DRIPS PER MINUTE
     Route: 041
     Dates: start: 20141201, end: 20141201
  5. 0.9% SODIUM CHLORIDE INJECTION [Suspect]
     Active Substance: SODIUM CHLORIDE
     Indication: CHEMOTHERAPY
     Dosage: 60 DRIPS PER MINUTE
     Route: 041
     Dates: start: 20141201, end: 20141201
  6. 5% GLUCOSE  INJECTION [Suspect]
     Active Substance: DEXTROSE
     Dosage: 60 DRIPS PER MINUTE
     Route: 041
     Dates: start: 20141201, end: 20141201

REACTIONS (1)
  - Leukopenia [Recovering/Resolving]

NARRATIVE: CASE EVENT DATE: 20141209
